FAERS Safety Report 11197794 (Version 1)
Quarter: 2015Q2

REPORT INFORMATION
  Report Type: Spontaneous
  Country: US (occurrence: US)
  Receive Date: 20150617
  Receipt Date: 20150617
  Transmission Date: 20150821
  Serious: No
  Sender: FDA-Public Use
  Company Number: US-TAKEDA-2014TUS008699

PATIENT
  Age: 39 Year
  Sex: Male

DRUGS (1)
  1. ULORIC [Suspect]
     Active Substance: FEBUXOSTAT
     Indication: GOUT
     Dosage: 1 TABLET, QD
     Route: 048
     Dates: start: 2011, end: 20140904

REACTIONS (1)
  - Tinnitus [Recovered/Resolved]
